FAERS Safety Report 25084640 (Version 1)
Quarter: 2025Q1

REPORT INFORMATION
  Report Type: Spontaneous
  Country: PL (occurrence: PL)
  Receive Date: 20250317
  Receipt Date: 20250317
  Transmission Date: 20250409
  Serious: Yes (Other)
  Sender: COSETTE PHARMACEUTICALS INC
  Company Number: PL-COSETTE-CP2025PL000255

PATIENT
  Age: 19 Year
  Sex: Female

DRUGS (1)
  1. LIDOCAINE HYDROCHLORIDE [Suspect]
     Active Substance: LIDOCAINE HYDROCHLORIDE
     Indication: Local anaesthesia
     Route: 065

REACTIONS (1)
  - Anaphylactic reaction [Unknown]
